FAERS Safety Report 15863423 (Version 1)
Quarter: 2019Q1

REPORT INFORMATION
  Report Type: Spontaneous
  Country: AT (occurrence: AT)
  Receive Date: 20190124
  Receipt Date: 20190124
  Transmission Date: 20190417
  Serious: Yes (Other)
  Sender: FDA-Public Use
  Company Number: AT-CASPER PHARMA LLC-2019CAS000012

PATIENT
  Age: 40 Year
  Sex: Male

DRUGS (1)
  1. PENICILLIN G BENZATHINE [Suspect]
     Active Substance: PENICILLIN G BENZATHINE
     Indication: NEUROSYPHILIS
     Dosage: 5 MILLION INTERNATIONAL UNIT
     Route: 042

REACTIONS (2)
  - Status epilepticus [Recovering/Resolving]
  - Jarisch-Herxheimer reaction [Recovering/Resolving]
